FAERS Safety Report 6918984-6 (Version None)
Quarter: 2010Q3

REPORT INFORMATION
  Report Type: 
  Country: None (occurrence: None)
  Receive Date: 20100811
  Receipt Date: 20100806
  Transmission Date: 20110219
  Serious: No
  Sender: FDA-Public Use
  Company Number: US-ROXANE LABORATORIES, INC.-2010-RO-00821RO

PATIENT
  Sex: Female

DRUGS (11)
  1. FLUTICASONE PROPIONATE [Suspect]
     Indication: ALLERGIC SINUSITIS
     Route: 045
  2. FLUTICASONE PROPIONATE [Suspect]
     Indication: SINUS CONGESTION
     Route: 045
  3. FLUTICASONE PROPIONATE [Suspect]
     Route: 045
     Dates: start: 20100617
  4. A/B OTIC DROPS [Concomitant]
     Dates: start: 20100609
  5. ASPIRIN [Concomitant]
     Dosage: 81 MG
     Route: 048
     Dates: start: 20100609
  6. CELLCEPT [Concomitant]
     Dosage: 3000 MG
     Route: 048
     Dates: start: 20100609
  7. CENTRUM SILVER [Concomitant]
     Route: 048
     Dates: start: 20100609
  8. FOSAMAX [Concomitant]
     Route: 048
     Dates: start: 20100617
  9. LASIX [Concomitant]
     Dosage: 10 MG
     Route: 048
     Dates: start: 20100617
  10. TESSALON [Concomitant]
     Route: 048
     Dates: start: 20100609
  11. ZANTAC [Concomitant]
     Dosage: 300 MG
     Route: 048
     Dates: start: 20100609

REACTIONS (1)
  - ANOSMIA [None]
